FAERS Safety Report 12488999 (Version 2)
Quarter: 2016Q3

REPORT INFORMATION
  Report Type: Report from Study
  Country: US (occurrence: US)
  Receive Date: 20160622
  Receipt Date: 20160713
  Transmission Date: 20161109
  Serious: Yes (Hospitalization)
  Sender: FDA-Public Use
  Company Number: US-PFIZER INC-2016298122

PATIENT
  Age: 79 Year
  Sex: Female
  Weight: 109 kg

DRUGS (8)
  1. BLINDED PF-06290510 [Suspect]
     Active Substance: INVESTIGATIONAL PRODUCT
     Indication: IMMUNISATION
     Dosage: SINGLE DOSE
     Route: 030
     Dates: start: 20160511, end: 20160511
  2. BLINDED PLACEBO [Suspect]
     Active Substance: INVESTIGATIONAL PRODUCT
     Indication: IMMUNISATION
     Dosage: SINGLE DOSE
     Route: 030
     Dates: start: 20160511, end: 20160511
  3. HEPARIN SODIUM. [Suspect]
     Active Substance: HEPARIN SODIUM
     Indication: DEEP VEIN THROMBOSIS
     Dosage: 25000 UNITS IN 500ML OF D5W 35ML/HR
     Route: 041
     Dates: start: 20160604, end: 20160607
  4. BLINDED PLACEBO [Suspect]
     Active Substance: INVESTIGATIONAL PRODUCT
     Indication: IMMUNISATION
     Dosage: SINGLE DOSE
     Route: 030
     Dates: start: 20160511, end: 20160511
  5. NORCO [Concomitant]
     Active Substance: ACETAMINOPHEN\HYDROCODONE BITARTRATE
     Indication: PAIN
     Dosage: 5MG/325 MG, Q4-6 HOURS
     Route: 048
     Dates: start: 20160524
  6. SENNA S [Concomitant]
     Active Substance: DOCUSATE SODIUM\SENNA LEAF
     Indication: PROPHYLAXIS
     Dosage: 8.6/50 MG, 2X/DAY
     Route: 048
     Dates: start: 20160524
  7. BLINDED PF-06290510 [Suspect]
     Active Substance: INVESTIGATIONAL PRODUCT
     Indication: IMMUNISATION
     Dosage: SINGLE DOSE
     Route: 030
     Dates: start: 20160511, end: 20160511
  8. MIRALAX /06344701/ [Concomitant]
     Indication: PROPHYLAXIS
     Dosage: 17 G, 1X/DAY
     Route: 048
     Dates: start: 20160524

REACTIONS (2)
  - Deep vein thrombosis [Recovering/Resolving]
  - Post procedural haematoma [Recovering/Resolving]

NARRATIVE: CASE EVENT DATE: 20160603
